FAERS Safety Report 19825131 (Version 1)
Quarter: 2021Q3

REPORT INFORMATION
  Report Type: Spontaneous
  Country: US (occurrence: US)
  Receive Date: 20210911
  Receipt Date: 20210911
  Transmission Date: 20211014
  Serious: No
  Sender: FDA-Public Use
  Company Number: None

PATIENT
  Age: 69 Year
  Sex: Female

DRUGS (1)
  1. ISONIAZID TAB 300MG [Suspect]
     Active Substance: ISONIAZID
     Dosage: OTHER FREQUENCY:OTHER;?
     Route: 048
     Dates: start: 202108

REACTIONS (3)
  - Headache [None]
  - Pain [None]
  - Nausea [None]

NARRATIVE: CASE EVENT DATE: 20210820
